FAERS Safety Report 6207780-3 (Version None)
Quarter: 2009Q2

REPORT INFORMATION
  Report Type: 
  Country: None (occurrence: None)
  Receive Date: 20090522
  Receipt Date: 20090507
  Transmission Date: 20091009
  Serious: Yes (Hospitalization)
  Sender: FDA-Public Use
  Company Number: VAL_00266_2009

PATIENT
  Sex: Female

DRUGS (9)
  1. ROCALTROL [Suspect]
     Indication: DRUG USE FOR UNKNOWN INDICATION
     Dosage: ORAL
     Route: 048
  2. MARCUMAR (MARCUMAR - PHENPROCOUMON) (NOT SPECIFIED) [Suspect]
     Indication: DRUG USE FOR UNKNOWN INDICATION
     Dosage: ORAL
     Route: 048
  3. TORSEMIDE [Suspect]
     Indication: DRUG USE FOR UNKNOWN INDICATION
     Dosage: 10 MG QD ORAL
     Route: 048
  4. AMARYL [Suspect]
     Indication: DRUG USE FOR UNKNOWN INDICATION
     Dosage: 2 MG QD ORAL
     Route: 048
  5. CODIPRONT MONO (CODIPRONT MONO RETARD TROPEN - CODEINE POLISTIREX) (NO [Suspect]
     Indication: DRUG USE FOR UNKNOWN INDICATION
     Dosage: 60 GTT QD ORAL
     Route: 048
  6. DECORTIN H (DECORTIN H - PREDNISOLONE) (NOT SPECIFIED) [Suspect]
     Indication: DRUG USE FOR UNKNOWN INDICATION
     Dosage: 5 MG QD ORAL
     Route: 048
  7. DURAFENAT (DURAFENAT RETARD - FENOFIBRATE) (NOT SPECIFIED) [Suspect]
     Indication: DRUG USE FOR UNKNOWN INDICATION
     Dosage: 200 MG QD ORAL
     Route: 048
  8. GLUCOBAY (GLUCOBAY 100 - ACARBOSE) (NOT SPECIFIED) [Suspect]
     Indication: DRUG USE FOR UNKNOWN INDICATION
     Dosage: 100 MG TID ORAL
     Route: 048
  9. TRACLEER [Suspect]
     Indication: DRUG USE FOR UNKNOWN INDICATION
     Dosage: 62.5 MG BID ORAL
     Route: 048

REACTIONS (15)
  - ABDOMINAL PAIN [None]
  - ANURIA [None]
  - BLOOD CREATININE INCREASED [None]
  - BLOOD POTASSIUM INCREASED [None]
  - COAGULATION TEST ABNORMAL [None]
  - HEPATIC FAILURE [None]
  - HYPOGLYCAEMIA [None]
  - INFLAMMATION [None]
  - INTERNATIONAL NORMALISED RATIO INCREASED [None]
  - METABOLIC ACIDOSIS [None]
  - PROTHROMBIN TIME PROLONGED [None]
  - RENAL FAILURE [None]
  - SEPSIS [None]
  - SOMNOLENCE [None]
  - ULTRASOUND SCAN ABNORMAL [None]
